FAERS Safety Report 7440767-1 (Version None)
Quarter: 2011Q2

REPORT INFORMATION
  Report Type: 
  Country: None (occurrence: None)
  Receive Date: 20110427
  Receipt Date: 20110421
  Transmission Date: 20111010
  Serious: Yes (Other)
  Sender: FDA-Public Use
  Company Number: US-PFIZER INC-2011087291

PATIENT
  Sex: Female

DRUGS (2)
  1. VESICARE [Suspect]
  2. DETROL LA [Suspect]

REACTIONS (1)
  - COELIAC DISEASE [None]
